FAERS Safety Report 20460682 (Version 1)
Quarter: 2022Q1

REPORT INFORMATION
  Report Type: Report from Study
  Country: US (occurrence: None)
  Receive Date: 20220211
  Receipt Date: 20220211
  Transmission Date: 20220423
  Serious: Yes (Life-Threatening, Hospitalization, Other)
  Sender: FDA-Public Use
  Company Number: US-ROCHE-797670

PATIENT
  Age: 61 Year
  Sex: Female
  Weight: 75 kg

DRUGS (3)
  1. BEVACIZUMAB [Suspect]
     Active Substance: BEVACIZUMAB
     Indication: Squamous cell carcinoma of head and neck
     Dosage: FREQUENCY: 15MG/KG IV OVER 30-90 MIN, DAY 1 LAST DOSE PRIOR TO SAE: 3 MARCH 2011
     Route: 042
     Dates: start: 20110210
  2. DOCETAXEL [Suspect]
     Active Substance: DOCETAXEL
     Indication: Squamous cell carcinoma of head and neck
     Dosage: FREQUENCY: 75MG/M2 IV OVER 1 HR, DAY 1 LAST DOSE PRIOR TO SAE: 2 JUNE 2011 TOTAL DOSE: 106 MG
     Route: 042
     Dates: start: 20110210
  3. CISPLATIN [Suspect]
     Active Substance: CISPLATIN
     Indication: Squamous cell carcinoma of head and neck
     Dosage: FREQUENCY: 75MG/M2 IV OVER 1-2 HRS, DAY 1 LAST DOSE PRIOR TO SAE: 2 JUNE 2011
     Route: 042
     Dates: start: 20110210

REACTIONS (10)
  - Embolism [Not Recovered/Not Resolved]
  - Device related thrombosis [Not Recovered/Not Resolved]
  - Pneumonitis [Recovered/Resolved]
  - Haemoglobin [Recovered/Resolved]
  - Tracheal haemorrhage [Recovering/Resolving]
  - Tracheitis [Recovering/Resolving]
  - Lung infiltration [Recovered/Resolved]
  - Embolism [Recovered/Resolved]
  - Vascular access complication [Recovered/Resolved]
  - Vascular access complication [Recovered/Resolved]

NARRATIVE: CASE EVENT DATE: 20110306
